FAERS Safety Report 9712907 (Version 1)
Quarter: 2013Q4

REPORT INFORMATION
  Report Type: Spontaneous
  Country: US (occurrence: None)
  Receive Date: 20131125
  Receipt Date: 20131125
  Transmission Date: 20140711
  Serious: Yes (Other)
  Sender: FDA-Public Use
  Company Number: None

PATIENT
  Age: 57 Year
  Sex: Male
  Weight: 96.16 kg

DRUGS (1)
  1. CRESTOR [Suspect]
     Indication: BLOOD CHOLESTEROL INCREASED
     Dates: start: 20100909, end: 20131010

REACTIONS (7)
  - Hypoaesthesia [None]
  - Paraesthesia [None]
  - Sensory disturbance [None]
  - Muscle spasms [None]
  - Dyspnoea [None]
  - Alanine aminotransferase increased [None]
  - Aspartate aminotransferase increased [None]
